FAERS Safety Report 7443738-4 (Version None)
Quarter: 2011Q2

REPORT INFORMATION
  Report Type: 
  Country: None (occurrence: None)
  Receive Date: 20110428
  Receipt Date: 20110116
  Transmission Date: 20111010
  Serious: No
  Sender: FDA-Public Use
  Company Number: US-BAUSCH-2011BL000337

PATIENT
  Age: 77 Year
  Sex: Female

DRUGS (9)
  1. ALREX [Suspect]
     Indication: ERYTHEMA OF EYELID
     Route: 047
     Dates: start: 20110111, end: 20110112
  2. ALREX [Suspect]
     Indication: EYE IRRITATION
     Route: 047
     Dates: start: 20110111, end: 20110112
  3. NAPHAZOLINE HYDROCHLORIDE [Suspect]
     Indication: EYE PRURITUS
     Route: 047
     Dates: start: 20110102, end: 20110111
  4. MOISTURE DROPS (ARTIFICIAL TEARS) [Suspect]
     Indication: DRY EYE
     Route: 047
     Dates: start: 20101231, end: 20110112
  5. ALREX [Suspect]
     Indication: EYE PRURITUS
     Route: 047
     Dates: start: 20110111, end: 20110112
  6. ALREX [Suspect]
     Indication: SEASONAL ALLERGY
     Route: 047
     Dates: start: 20110111, end: 20110112
  7. ALREX [Suspect]
     Indication: EYE SWELLING
     Route: 047
     Dates: start: 20110111, end: 20110112
  8. ALREX [Suspect]
     Indication: OCULAR HYPERAEMIA
     Route: 047
     Dates: start: 20110111, end: 20110112
  9. ALREX [Suspect]
     Indication: EYELID OEDEMA
     Route: 047
     Dates: start: 20110111, end: 20110112

REACTIONS (9)
  - CONDITION AGGRAVATED [None]
  - VISUAL IMPAIRMENT [None]
  - EYE SWELLING [None]
  - EXPIRED DRUG ADMINISTERED [None]
  - EYELID OEDEMA [None]
  - EYE PRURITUS [None]
  - EYE IRRITATION [None]
  - SCLERAL HYPERAEMIA [None]
  - ERYTHEMA OF EYELID [None]
